FAERS Safety Report 12624976 (Version 8)
Quarter: 2018Q4

REPORT INFORMATION
  Report Type: Spontaneous
  Country: US (occurrence: US)
  Receive Date: 20160805
  Receipt Date: 20181102
  Transmission Date: 20190204
  Serious: Yes (Other)
  Sender: FDA-Public Use
  Company Number: US-009507513-1608USA000768

PATIENT
  Sex: Female

DRUGS (1)
  1. IMPLANON [Suspect]
     Active Substance: ETONOGESTREL
     Indication: CONTRACEPTION
     Dosage: 1 DOSAGE FORM, RIGHT UPPER ARM
     Route: 059
     Dates: start: 20130604

REACTIONS (15)
  - Device dislocation [Not Recovered/Not Resolved]
  - Pain in extremity [Recovering/Resolving]
  - Hypoaesthesia [Unknown]
  - Incorrect product administration duration [Not Recovered/Not Resolved]
  - Surgery [Not Recovered/Not Resolved]
  - Complication of device removal [Not Recovered/Not Resolved]
  - Weight increased [Unknown]
  - General anaesthesia [Unknown]
  - Pain in extremity [Unknown]
  - Peripheral swelling [Unknown]
  - Haematoma [Unknown]
  - Swelling [Unknown]
  - Complication associated with device [Recovered/Resolved]
  - Fibromyalgia [Unknown]
  - Complication of device removal [Not Recovered/Not Resolved]

NARRATIVE: CASE EVENT DATE: 2016
